FAERS Safety Report 4915449-8 (Version None)
Quarter: 2006Q1

REPORT INFORMATION
  Report Type: 
  Country: None (occurrence: None)
  Receive Date: 20060217
  Receipt Date: 20051001
  Transmission Date: 20060701
  Serious: Yes (Hospitalization)
  Sender: FDA-Public Use
  Company Number: PR-MERCK-0510USA01758

PATIENT
  Age: 69 Year
  Sex: Female
  Weight: 75 kg

DRUGS (1)
  1. VIOXX [Suspect]
     Indication: ARTHRITIS
     Route: 048
     Dates: start: 19990101

REACTIONS (6)
  - BACK PAIN [None]
  - CARDIAC DISORDER [None]
  - CORONARY ARTERY DISEASE [None]
  - POST PROCEDURAL DIARRHOEA [None]
  - POST PROCEDURAL VOMITING [None]
  - VENOUS OCCLUSION [None]
